FAERS Safety Report 18462498 (Version 1)
Quarter: 2020Q4

REPORT INFORMATION
  Report Type: Spontaneous
  Country: US (occurrence: US)
  Receive Date: 20201103
  Receipt Date: 20201103
  Transmission Date: 20210114
  Serious: Yes (Death)
  Sender: FDA-Public Use
  Company Number: None

PATIENT
  Age: 66 Year
  Sex: Male

DRUGS (10)
  1. DEXAMETHASON, [Concomitant]
  2. ENTRESTO, [Concomitant]
  3. OMEPRAZOLE, [Concomitant]
  4. CARVEDILOL, [Concomitant]
  5. HYDROCO/APAP, [Concomitant]
  6. TRAMADOL HCL, [Concomitant]
  7. VIRTUSSIN AC [Concomitant]
     Active Substance: CODEINE PHOSPHATE\GUAIFENESIN
  8. SPIRONOLACT, [Concomitant]
  9. ESBRIET [Suspect]
     Active Substance: PIRFENIDONE
     Indication: IDIOPATHIC PULMONARY FIBROSIS
     Dosage: ?          OTHER DOSE:1 TAB;OTHER FREQUENCY:TID-B/L/D;?
     Route: 048
     Dates: start: 20190125, end: 20201022
  10. BENZONATATE, [Concomitant]

REACTIONS (2)
  - Pregnancy [None]
  - Maternal exposure timing unspecified [None]

NARRATIVE: CASE EVENT DATE: 20201022
